FAERS Safety Report 7831549-7 (Version None)
Quarter: 2011Q4

REPORT INFORMATION
  Report Type: 
  Country: None (occurrence: None)
  Receive Date: 20111021
  Receipt Date: 20111014
  Transmission Date: 20120403
  Serious: Yes (Other)
  Sender: FDA-Public Use
  Company Number: CHPA2011US14358

PATIENT
  Age: 68 Year
  Sex: Female

DRUGS (3)
  1. PREVACID 24 HR [Suspect]
     Dosage: 30 MG, QD
     Route: 048
  2. PREVACID 24 HR [Suspect]
     Indication: GASTROOESOPHAGEAL REFLUX DISEASE
     Dosage: 15 MG, UNK
     Route: 048
  3. LORATADINE [Concomitant]
     Indication: MULTIPLE ALLERGIES
     Route: 048

REACTIONS (5)
  - DRUG INEFFECTIVE FOR UNAPPROVED INDICATION [None]
  - DEAFNESS [None]
  - INCORRECT DRUG ADMINISTRATION DURATION [None]
  - OVERDOSE [None]
  - THERAPEUTIC RESPONSE UNEXPECTED [None]
